FAERS Safety Report 24945515 (Version 2)
Quarter: 2025Q1

REPORT INFORMATION
  Report Type: Spontaneous
  Country: US (occurrence: US)
  Receive Date: 20250209
  Receipt Date: 20250218
  Transmission Date: 20250409
  Serious: Yes (Other)
  Sender: BAYER HEALTHCARE PHARMACEUTICALS INC.
  Company Number: US-BAYER-2025A014082

PATIENT
  Sex: Female

DRUGS (1)
  1. MIRENA [Suspect]
     Active Substance: LEVONORGESTREL
     Dosage: 20?G/DAY
     Route: 015

REACTIONS (6)
  - Ovarian cyst ruptured [None]
  - Illness [Recovered/Resolved]
  - Anaemia [Recovered/Resolved]
  - Iron deficiency [Recovered/Resolved]
  - Coagulopathy [Recovered/Resolved]
  - Back pain [None]
